FAERS Safety Report 7691576-X (Version None)
Quarter: 2011Q3

REPORT INFORMATION
  Report Type: 
  Country: None (occurrence: None)
  Receive Date: 20110818
  Receipt Date: 20110808
  Transmission Date: 20111222
  Serious: Yes (Hospitalization)
  Sender: FDA-Public Use
  Company Number: JP-ASTRAZENECA-2011SE47429

PATIENT
  Age: 38 Year
  Sex: Female

DRUGS (4)
  1. AZULFIDINE [Concomitant]
     Route: 048
     Dates: start: 20080101
  2. TACROLIMUS [Concomitant]
     Route: 065
     Dates: start: 20080101
  3. CANDESARTAN CILEXETIL [Suspect]
     Indication: PROPHYLAXIS
     Route: 048
     Dates: start: 20080101, end: 20110731
  4. PREDNISOLONE [Concomitant]
     Route: 065
     Dates: start: 20080101

REACTIONS (2)
  - MATERNAL EXPOSURE DURING PREGNANCY [None]
  - OLIGOHYDRAMNIOS [None]
